FAERS Safety Report 7753579-6 (Version None)
Quarter: 2011Q3

REPORT INFORMATION
  Report Type: 
  Country: None (occurrence: None)
  Receive Date: 20110915
  Receipt Date: 20110908
  Transmission Date: 20111222
  Serious: Yes (Death, Hospitalization)
  Sender: FDA-Public Use
  Company Number: US-GLAXOSMITHKLINE-A0884660A

PATIENT
  Age: 74 Year
  Sex: Female

DRUGS (7)
  1. AVANDIA [Suspect]
     Indication: DIABETES MELLITUS
     Dosage: 8MG PER DAY
     Route: 048
     Dates: end: 20070101
  2. GLUCOPHAGE [Concomitant]
  3. ZESTRIL [Concomitant]
  4. RELAFEN [Concomitant]
  5. HYDROCHLOROTHIAZIDE [Concomitant]
  6. CALAN [Concomitant]
  7. LANTUS [Concomitant]

REACTIONS (3)
  - RESPIRATORY FAILURE [None]
  - CHRONIC OBSTRUCTIVE PULMONARY DISEASE [None]
  - CARDIAC FAILURE CONGESTIVE [None]
